FAERS Safety Report 25163650 (Version 2)
Quarter: 2025Q3

REPORT INFORMATION
  Report Type: Spontaneous
  Country: CA (occurrence: CA)
  Receive Date: 20250405
  Receipt Date: 20250707
  Transmission Date: 20251020
  Serious: Yes (Life-Threatening, Hospitalization)
  Sender: ABBVIE
  Company Number: CA-LUNDBECK-DKLU4012578

PATIENT
  Sex: Male
  Weight: 4 kg

DRUGS (4)
  1. ESCITALOPRAM [Suspect]
     Active Substance: ESCITALOPRAM OXALATE
     Indication: Maternal exposure timing unspecified
     Route: 064
  2. CHOLECALCIFEROL [Concomitant]
     Active Substance: CHOLECALCIFEROL
     Indication: Product used for unknown indication
     Dosage: DOSE - 400 INTERNATIONAL UNIT
     Route: 048
  3. GENTAMICIN [Concomitant]
     Active Substance: GENTAMICIN
     Indication: Product used for unknown indication
     Dosage: DOSE - 13 MILLIGRAM
     Route: 042
  4. AMPICILLIN [Concomitant]
     Active Substance: AMPICILLIN
     Indication: Product used for unknown indication
     Dosage: DOSE - 200 MILLIGRAM
     Route: 042

REACTIONS (6)
  - General physical health deterioration [Unknown]
  - Foetal exposure during pregnancy [Unknown]
  - Tremor [Recovered/Resolved]
  - Infection [Unknown]
  - Poor sucking reflex [Unknown]
  - Seizure [Recovered/Resolved]
